FAERS Safety Report 6167651-8 (Version None)
Quarter: 2009Q2

REPORT INFORMATION
  Report Type: 
  Country: None (occurrence: None)
  Receive Date: 20090424
  Receipt Date: 20090423
  Transmission Date: 20091009
  Serious: Yes (Death)
  Sender: FDA-Public Use
  Company Number: PHEH2009US03913

PATIENT
  Sex: Female

DRUGS (1)
  1. SANDOSTATIN LAR [Suspect]
     Indication: CARCINOID SYNDROME
     Dosage: 20 MG, QMO
     Route: 030
     Dates: start: 20070510, end: 20090326

REACTIONS (4)
  - INTESTINAL ISCHAEMIA [None]
  - MALIGNANT NEOPLASM PROGRESSION [None]
  - METASTASES TO LIVER [None]
  - TUMOUR COMPRESSION [None]
